FAERS Safety Report 7560587-7 (Version None)
Quarter: 2011Q2

REPORT INFORMATION
  Report Type: 
  Country: None (occurrence: None)
  Receive Date: 20110621
  Receipt Date: 20100512
  Transmission Date: 20111010
  Serious: No
  Sender: FDA-Public Use
  Company Number: US-ASTRAZENECA-2009UW18535

PATIENT
  Sex: Male
  Weight: 68 kg

DRUGS (8)
  1. CIPROFLOXACIN HCL [Interacting]
  2. PROSCAR [Concomitant]
  3. METRONIDAZOLE [Interacting]
  4. FLOMAX [Concomitant]
  5. ENTOCORT EC [Interacting]
     Route: 048
  6. QUESTRAN [Concomitant]
  7. ENTOCORT EC [Suspect]
     Indication: ARTHRITIS ENTEROPATHIC
     Route: 048
     Dates: start: 20090101
  8. CARDIZEM [Concomitant]

REACTIONS (12)
  - OEDEMA PERIPHERAL [None]
  - CUSHINGOID [None]
  - SYSTOLIC HYPERTENSION [None]
  - FATIGUE [None]
  - COORDINATION ABNORMAL [None]
  - CELLULITIS [None]
  - FISTULA [None]
  - CLOSTRIDIAL INFECTION [None]
  - POTENTIATING DRUG INTERACTION [None]
  - MUSCLE SPASMS [None]
  - VISION BLURRED [None]
  - MALAISE [None]
